FAERS Safety Report 17655462 (Version 2)
Quarter: 2020Q2

REPORT INFORMATION
  Report Type: Spontaneous
  Country: US (occurrence: US)
  Receive Date: 20200410
  Receipt Date: 20200519
  Transmission Date: 20200713
  Serious: No
  Sender: FDA-Public Use
  Company Number: US-PFIZER INC-2020144703

PATIENT
  Age: 33 Year
  Sex: Female

DRUGS (1)
  1. XELJANZ [Suspect]
     Active Substance: TOFACITINIB CITRATE
     Indication: COLITIS ULCERATIVE
     Dosage: 10 MG, 2X/DAY
     Route: 048
     Dates: start: 2019

REACTIONS (4)
  - Condition aggravated [Not Recovered/Not Resolved]
  - Pain [Unknown]
  - Decreased appetite [Recovered/Resolved]
  - Product dose omission [Unknown]
